FAERS Safety Report 7626990-1 (Version None)
Quarter: 2011Q3

REPORT INFORMATION
  Report Type: 
  Country: None (occurrence: None)
  Receive Date: 20110721
  Receipt Date: 20110711
  Transmission Date: 20111222
  Serious: Yes (Hospitalization)
  Sender: FDA-Public Use
  Company Number: ZA-BRISTOL-MYERS SQUIBB COMPANY-15913262

PATIENT
  Age: 65 Year
  Sex: Female
  Weight: 57 kg

DRUGS (8)
  1. ERBITUX [Suspect]
     Indication: COLON CANCER METASTATIC
     Dosage: INTERRUPTED 20JUN2011 RESTARTED ON 12JUL2011 DISCONTINUED
     Dates: start: 20110207
  2. FLUOROURACIL [Concomitant]
     Indication: COLON CANCER METASTATIC
     Dates: start: 20110124
  3. MAGNESIUM [Concomitant]
     Dosage: SLOW MAGNESIUM -
     Dates: start: 20110530
  4. NEUROBION [Concomitant]
     Dates: start: 20110228
  5. OXALIPLATIN [Concomitant]
     Indication: COLON CANCER METASTATIC
     Dates: start: 20110124
  6. PLENISH-K [Concomitant]
     Dates: start: 20110330, end: 20110627
  7. SPIRACTIN [Concomitant]
     Dates: start: 20110330
  8. LYRICA [Concomitant]
     Dates: start: 20110301, end: 20110613

REACTIONS (5)
  - HYPOKALAEMIA [None]
  - HYPOMAGNESAEMIA [None]
  - HYPONATRAEMIA [None]
  - ABDOMINAL PAIN [None]
  - FATIGUE [None]
